FAERS Safety Report 5318795-1 (Version None)
Quarter: 2007Q2

REPORT INFORMATION
  Report Type: 
  Country: None (occurrence: None)
  Receive Date: 20070508
  Receipt Date: 20070501
  Transmission Date: 20071010
  Serious: Yes (Hospitalization)
  Sender: FDA-Public Use
  Company Number: HQWYE946302MAY07

PATIENT
  Sex: Male

DRUGS (2)
  1. CORDARONE [Suspect]
     Indication: HEART RATE IRREGULAR
     Route: 048
     Dates: start: 19930101, end: 20060101
  2. CORDARONE [Suspect]
     Route: 048
     Dates: start: 20060101, end: 20070202

REACTIONS (1)
  - PLEURAL EFFUSION [None]
